FAERS Safety Report 10214491 (Version 1)
Quarter: 2014Q2

REPORT INFORMATION
  Report Type: Spontaneous
  Country: US (occurrence: None)
  Receive Date: 20140602
  Receipt Date: 20140602
  Transmission Date: 20141212
  Serious: Yes (Hospitalization)
  Sender: FDA-Public Use
  Company Number: None

PATIENT
  Age: 71 Year
  Sex: Male
  Weight: 94 kg

DRUGS (10)
  1. FETZIMA [Suspect]
     Indication: DEPRESSION
     Dosage: 1 PILL
     Route: 048
  2. LEVOTHYROXINE [Concomitant]
  3. AMBIEN [Concomitant]
  4. XARELTO [Concomitant]
  5. SIMVASTATIN [Concomitant]
  6. CIALIS [Concomitant]
  7. ANDROGEL [Concomitant]
  8. ALFUZOSIN [Concomitant]
  9. CELEBREX [Concomitant]
  10. FETZIMA [Suspect]

REACTIONS (2)
  - Palpitations [None]
  - Cardiac failure [None]
